FAERS Safety Report 13213460 (Version 2)
Quarter: 2017Q1

REPORT INFORMATION
  Report Type: Report from Study
  Country: None (occurrence: NL)
  Receive Date: 20170210
  Receipt Date: 20170216
  Transmission Date: 20170428
  Serious: Yes (Death, Hospitalization)
  Sender: FDA-Public Use
  Company Number: NL-ABBVIE-16P-114-1728827-00

PATIENT
  Age: 80 Year
  Sex: Male
  Weight: 52 kg

DRUGS (5)
  1. DUODOPA [Suspect]
     Active Substance: CARBIDOPA\LEVODOPA
     Dosage: MD INCREASED TO 10 ML
     Route: 050
     Dates: end: 201609
  2. DUODOPA [Suspect]
     Active Substance: CARBIDOPA\LEVODOPA
     Indication: PARKINSON^S DISEASE
     Route: 050
  3. DUODOPA [Suspect]
     Active Substance: CARBIDOPA\LEVODOPA
     Dosage: MD REDUCED WITH 1 ML
     Route: 050
  4. DUODOPA [Suspect]
     Active Substance: CARBIDOPA\LEVODOPA
     Dosage: MORNING DOSE 10 ML
     Route: 050
     Dates: start: 2016
  5. DUODOPA [Suspect]
     Active Substance: CARBIDOPA\LEVODOPA
     Dosage: MORNING DOSE 9 ML
     Route: 050
     Dates: start: 201609, end: 2016

REACTIONS (25)
  - Speech disorder [Not Recovered/Not Resolved]
  - Gait disturbance [Not Recovered/Not Resolved]
  - Influenza like illness [Not Recovered/Not Resolved]
  - Memory impairment [Not Recovered/Not Resolved]
  - Dyskinesia [Not Recovered/Not Resolved]
  - Malnutrition [Unknown]
  - Slow speech [Not Recovered/Not Resolved]
  - Initial insomnia [Not Recovered/Not Resolved]
  - Cognitive disorder [Not Recovered/Not Resolved]
  - Freezing phenomenon [Recovered/Resolved]
  - Disturbance in attention [Not Recovered/Not Resolved]
  - General physical health deterioration [Fatal]
  - Infection [Unknown]
  - Confusional state [Unknown]
  - Salivary hypersecretion [Not Recovered/Not Resolved]
  - Choking [Not Recovered/Not Resolved]
  - Drug effect decreased [Unknown]
  - Pneumonia [Fatal]
  - Dysphagia [Fatal]
  - Choking [Recovered/Resolved]
  - Fatigue [Not Recovered/Not Resolved]
  - Cough [Not Recovered/Not Resolved]
  - Decreased eye contact [Not Recovered/Not Resolved]
  - Delirium [Unknown]
  - On and off phenomenon [Not Recovered/Not Resolved]

NARRATIVE: CASE EVENT DATE: 201610
